FAERS Safety Report 10293036 (Version 4)
Quarter: 2016Q1

REPORT INFORMATION
  Report Type: Spontaneous
  Country: DE (occurrence: DE)
  Receive Date: 20140710
  Receipt Date: 20160224
  Transmission Date: 20160525
  Serious: Yes (Disabling, Other)
  Sender: FDA-Public Use
  Company Number: DE-BRISTOL-MYERS SQUIBB COMPANY-21117957

PATIENT
  Age: 49 Year
  Sex: Male
  Weight: 80 kg

DRUGS (3)
  1. BLEOMYCIN SULFATE [Suspect]
     Active Substance: BLEOMYCIN SULFATE
     Indication: TESTIS CANCER
     Dosage: 30 MG, UNK
     Route: 042
     Dates: start: 20110802, end: 20110816
  2. VEPESID [Suspect]
     Active Substance: ETOPOSIDE
     Indication: TESTIS CANCER
     Dosage: 212 MG, UNK
     Route: 042
     Dates: start: 201105, end: 201109
  3. BRIPLATIN [Suspect]
     Active Substance: CISPLATIN
     Indication: TESTIS CANCER
     Dosage: MAY2011-SEP2011
     Route: 042
     Dates: start: 20110704, end: 20110718

REACTIONS (4)
  - Parkinson^s disease [Not Recovered/Not Resolved]
  - Off label use [Unknown]
  - Polyneuropathy [Unknown]
  - Leukopenia [Unknown]

NARRATIVE: CASE EVENT DATE: 20140513
